FAERS Safety Report 13027117 (Version 1)
Quarter: 2016Q4

REPORT INFORMATION
  Report Type: Report from Study
  Country: IL (occurrence: IL)
  Receive Date: 20161214
  Receipt Date: 20161214
  Transmission Date: 20170207
  Serious: No
  Sender: FDA-Public Use
  Company Number: IL-JNJFOC-20160613669

PATIENT
  Age: 50 Year
  Sex: Female

DRUGS (2)
  1. BETACORTEN [Concomitant]
  2. STELARA [Suspect]
     Active Substance: USTEKINUMAB
     Indication: PSORIATIC ARTHROPATHY
     Route: 058

REACTIONS (4)
  - Nasopharyngitis [Recovering/Resolving]
  - Psoriasis [Recovering/Resolving]
  - Inappropriate schedule of drug administration [Unknown]
  - Dizziness [Recovered/Resolved]

NARRATIVE: CASE EVENT DATE: 20161129
